FAERS Safety Report 4439027-2 (Version None)
Quarter: 2004Q3

REPORT INFORMATION
  Report Type: 
  Country: None (occurrence: None)
  Receive Date: 20040830
  Receipt Date: 20040817
  Transmission Date: 20050211
  Serious: Yes (Hospitalization)
  Sender: FDA-Public Use
  Company Number: GB-2004-029546

PATIENT
  Age: 69 Year
  Sex: Male
  Weight: 78 kg

DRUGS (6)
  1. FLUDARABINE PHOSPHATE [Suspect]
     Indication: CHRONIC LYMPHOCYTIC LEUKAEMIA
     Dosage: 50 MG, INTRAVENOUS
     Route: 042
     Dates: start: 20040630, end: 20040702
  2. CYCLOPHOSPHAMIDE [Suspect]
     Indication: CHRONIC LYMPHOCYTIC LEUKAEMIA
     Dosage: 300 MG, INTRAVENOUS
     Route: 042
     Dates: start: 20040630, end: 20040702
  3. ALLOPURINOL [Concomitant]
  4. ACYCLOVIR [Concomitant]
  5. COTRIM [Concomitant]
  6. CYCLOPHOSPHAMIDE [Concomitant]

REACTIONS (2)
  - DRUG INEFFECTIVE [None]
  - LICHEN PLANUS [None]
